FAERS Safety Report 5723940-X (Version None)
Quarter: 2008Q2

REPORT INFORMATION
  Report Type: 
  Country: None (occurrence: None)
  Receive Date: 20080430
  Receipt Date: 20080422
  Transmission Date: 20081010
  Serious: Yes (Hospitalization)
  Sender: FDA-Public Use
  Company Number: NL-WYE-H03582008

PATIENT
  Sex: Male

DRUGS (6)
  1. CORDARONE [Suspect]
     Indication: ATRIAL FIBRILLATION
     Route: 048
     Dates: start: 20070627, end: 20080213
  2. MARCUMAR [Concomitant]
     Dosage: DOSE AND FREQUENCY NOT SPECIFIED
     Route: 048
     Dates: start: 20070628, end: 20080211
  3. MARCUMAR [Concomitant]
     Dosage: DOSE AND FREQUENCY NOT SPECIFIED
     Route: 065
     Dates: start: 20080101
  4. FUROSEMIDE [Concomitant]
     Route: 048
     Dates: start: 20070628, end: 20080211
  5. PERINDOPRIL ERBUMINE [Concomitant]
     Route: 048
     Dates: start: 20070628, end: 20080211
  6. SPIRONOLACTONE [Concomitant]
     Route: 048
     Dates: start: 20070628, end: 20080211

REACTIONS (3)
  - HENOCH-SCHONLEIN PURPURA [None]
  - HYPERPARATHYROIDISM SECONDARY [None]
  - RENAL FAILURE ACUTE [None]
